FAERS Safety Report 14730502 (Version 3)
Quarter: 2020Q3

REPORT INFORMATION
  Report Type: Report from Study
  Country: CA (occurrence: CA)
  Receive Date: 20180406
  Receipt Date: 20191202
  Transmission Date: 20201104
  Serious: Yes (Other)
  Sender: FDA-Public Use
  Company Number: PHHY2015CA104983

PATIENT
  Age: 46 Year
  Sex: Female

DRUGS (10)
  1. PREDNISONE. [Suspect]
     Active Substance: PREDNISONE
     Dosage: 20 MG, QOD
     Route: 065
  2. PREDNISONE. [Suspect]
     Active Substance: PREDNISONE
     Dosage: 50 MG, FOR 5 DAYS
     Route: 065
  3. PREDNISONE. [Suspect]
     Active Substance: PREDNISONE
     Indication: ANGIOEDEMA
     Dosage: UNK UNK, PRN
     Route: 065
  4. ZYRTEC [Concomitant]
     Active Substance: CETIRIZINE HYDROCHLORIDE
     Indication: PRODUCT USED FOR UNKNOWN INDICATION
     Dosage: UNK
     Route: 065
  5. XOLAIR [Suspect]
     Active Substance: OMALIZUMAB
     Indication: CHRONIC SPONTANEOUS URTICARIA
     Dosage: 300 MG, EVERY 4 WEEKS
     Route: 058
     Dates: start: 20150820
  6. CLARITIN [Concomitant]
     Active Substance: LORATADINE
     Indication: URTICARIA
     Dosage: UNK
     Route: 065
  7. BENADRYL [Suspect]
     Active Substance: DIPHENHYDRAMINE HYDROCHLORIDE
     Indication: PRODUCT USED FOR UNKNOWN INDICATION
     Dosage: 50 MG, PRN
     Route: 065
  8. ZANTAC [Concomitant]
     Active Substance: RANITIDINE HYDROCHLORIDE
     Indication: PRODUCT USED FOR UNKNOWN INDICATION
     Dosage: UNK, QD
     Route: 065
  9. HYDROXYZINE [Suspect]
     Active Substance: HYDROXYZINE HYDROCHLORIDE
     Indication: PRODUCT USED FOR UNKNOWN INDICATION
     Dosage: 25 MG, QD
     Route: 065
  10. REACTIN//CETIRIZINE HYDROCHLORIDE [Concomitant]
     Indication: PRODUCT USED FOR UNKNOWN INDICATION
     Dosage: 2 DF, UNK
     Route: 065

REACTIONS (17)
  - Visual impairment [Unknown]
  - Somnolence [Unknown]
  - Infertility [Unknown]
  - Rash [Unknown]
  - Arthropathy [Unknown]
  - Gait disturbance [Unknown]
  - Malaise [Unknown]
  - Hypersensitivity [Unknown]
  - Urticaria [Not Recovered/Not Resolved]
  - Swelling [Unknown]
  - Abdominal discomfort [Not Recovered/Not Resolved]
  - Angioedema [Not Recovered/Not Resolved]
  - Pruritus [Not Recovered/Not Resolved]
  - Feeling abnormal [Unknown]
  - Arthralgia [Unknown]
  - Weight increased [Unknown]
  - Sensitivity to weather change [Unknown]

NARRATIVE: CASE EVENT DATE: 2015
